FAERS Safety Report 13276812 (Version 1)
Quarter: 2017Q1

REPORT INFORMATION
  Report Type: Spontaneous
  Country: US (occurrence: US)
  Receive Date: 20170227
  Receipt Date: 20170227
  Transmission Date: 20170428
  Serious: No
  Sender: FDA-Public Use
  Company Number: None

PATIENT
  Age: 37 Year
  Sex: Male

DRUGS (1)
  1. HARVONI [Suspect]
     Active Substance: LEDIPASVIR\SOFOSBUVIR
     Indication: HEPATITIS C

REACTIONS (5)
  - Abdominal pain upper [None]
  - Hot flush [None]
  - Anxiety [None]
  - Formication [None]
  - Cold sweat [None]

NARRATIVE: CASE EVENT DATE: 20170227
